FAERS Safety Report 9729863 (Version 2)
Quarter: 2013Q4

REPORT INFORMATION
  Report Type: Spontaneous
  Country: IT (occurrence: None)
  Receive Date: 20131203
  Receipt Date: 20131206
  Transmission Date: 20140711
  Serious: Yes (Hospitalization)
  Sender: FDA-Public Use
  Company Number: AUR-APL-2013-10078

PATIENT
  Age: 59 Year
  Sex: Female

DRUGS (3)
  1. LEVOFLOXACIN (LEVOFLOXACIN) [Suspect]
     Indication: NECROTISING FASCIITIS
     Route: 048
     Dates: start: 20131022, end: 20131026
  2. RIFADIN [Suspect]
     Indication: NECROTISING FASCIITIS
     Dates: start: 20131022, end: 20131026
  3. VANCOMYCIN HYDROCHLORIDE (VANCOMYCIN HYDROCHLORIDE) [Concomitant]

REACTIONS (1)
  - Blood creatinine increased [None]
